FAERS Safety Report 8158161-7 (Version None)
Quarter: 2012Q1

REPORT INFORMATION
  Report Type: 
  Country: None (occurrence: None)
  Receive Date: 20120222
  Receipt Date: 20120214
  Transmission Date: 20120608
  Serious: Yes (Hospitalization)
  Sender: FDA-Public Use
  Company Number: US-ASTRAZENECA-2011SE34987

PATIENT
  Age: 58 Year
  Sex: Female
  Weight: 83.5 kg

DRUGS (7)
  1. EFFEXOR [Concomitant]
  2. OMEPRAZOLE [Concomitant]
  3. SPIRIVA [Concomitant]
  4. XANAX [Concomitant]
  5. HYZAAR [Concomitant]
  6. XOPENEX [Concomitant]
  7. CRESTOR [Suspect]
     Indication: HYPERCHOLESTEROLAEMIA
     Route: 048
     Dates: start: 20100501, end: 20110101

REACTIONS (5)
  - QUADRIPLEGIA [None]
  - DYSARTHRIA [None]
  - VIITH NERVE PARALYSIS [None]
  - APHASIA [None]
  - HEMIPARESIS [None]
